FAERS Safety Report 8297537-4 (Version None)
Quarter: 2012Q2

REPORT INFORMATION
  Report Type: 
  Country: None (occurrence: None)
  Receive Date: 20120419
  Receipt Date: 20120413
  Transmission Date: 20120825
  Serious: Yes (Hospitalization)
  Sender: FDA-Public Use
  Company Number: PHHY2012IE018652

PATIENT
  Sex: Male

DRUGS (11)
  1. LITHIUM CARBONATE [Concomitant]
     Dosage: 400 MG, QD
     Route: 048
  2. FLUTICASONE PROPIONATE/SALMETEROL [Concomitant]
     Dosage: 500 UG, QD
  3. TEGRETOL [Suspect]
     Indication: EPILEPSY
     Dosage: 400 MG, BID
  4. SPIRIVA [Concomitant]
     Dosage: UNK UKN, QD
  5. ATROVENT [Concomitant]
     Dosage: UNK UKN, QHS
  6. ALBUTEROL [Concomitant]
     Dosage: UNK UKN, QHS
  7. CLARITHROMYCIN [Interacting]
     Indication: LOWER RESPIRATORY TRACT INFECTION
     Dosage: 500 MG, BID
     Dates: start: 20120225, end: 20120301
  8. TEGRETOL [Interacting]
     Dosage: 400 MG, TID
     Dates: start: 20110225
  9. AMOXICILLIN AND CLAVULANATE POTASSIUM [Concomitant]
     Dosage: 1.2 MG, TID
     Route: 042
     Dates: start: 20120225
  10. NITRAZEPAM [Concomitant]
     Dosage: 5 MG, QD
     Route: 048
  11. TRIFLUOPERAZINE HCL [Concomitant]
     Dosage: 5 MG, TID
     Route: 048

REACTIONS (6)
  - LOWER RESPIRATORY TRACT INFECTION [None]
  - TOXICITY TO VARIOUS AGENTS [None]
  - ANTICONVULSANT DRUG LEVEL INCREASED [None]
  - DRUG INTERACTION [None]
  - MALAISE [None]
  - CONVULSION [None]
